FAERS Safety Report 5702806-5 (Version None)
Quarter: 2008Q2

REPORT INFORMATION
  Report Type: 
  Country: None (occurrence: None)
  Receive Date: 20080410
  Receipt Date: 20080410
  Transmission Date: 20081010
  Serious: Yes (Hospitalization)
  Sender: FDA-Public Use
  Company Number: None

PATIENT
  Age: 54 Year
  Sex: Female
  Weight: 66.4 kg

DRUGS (6)
  1. FLUDARABINE PHOSPHATE [Suspect]
     Indication: NON-HODGKIN'S LYMPHOMA
     Dates: start: 20040201, end: 20040801
  2. FLUDARABINE PHOSPHATE [Suspect]
     Indication: NON-HODGKIN'S LYMPHOMA
     Dates: start: 20070801, end: 20080201
  3. CYTOXAN [Concomitant]
  4. RITUXAN [Concomitant]
  5. PENTOSTATIN [Concomitant]
  6. NULASTA [Concomitant]

REACTIONS (7)
  - BALANCE DISORDER [None]
  - BLINDNESS [None]
  - DEAFNESS [None]
  - DEAFNESS UNILATERAL [None]
  - GAIT DISTURBANCE [None]
  - MEMORY IMPAIRMENT [None]
  - VISION BLURRED [None]
